FAERS Safety Report 23541223 (Version 1)
Quarter: 2024Q1

REPORT INFORMATION
  Report Type: Spontaneous
  Country: US (occurrence: US)
  Receive Date: 20240219
  Receipt Date: 20240219
  Transmission Date: 20240410
  Serious: No
  Sender: FDA-Public Use
  Company Number: US-Stemline Therapeutics, Inc.-2023ST005040

PATIENT
  Age: 60 Year
  Sex: Female

DRUGS (1)
  1. ORSERDU [Suspect]
     Active Substance: ELACESTRANT
     Indication: Product used for unknown indication
     Dosage: 345MG ONCE DAILY
     Route: 048
     Dates: start: 20231115

REACTIONS (6)
  - Adverse event [Unknown]
  - Product dose omission issue [Unknown]
  - Restless legs syndrome [Unknown]
  - Therapeutic response unexpected [Unknown]
  - Fatigue [Unknown]
  - Haemoglobin decreased [Unknown]
